FAERS Safety Report 8444561-4 (Version None)
Quarter: 2012Q2

REPORT INFORMATION
  Report Type: 
  Country: None (occurrence: None)
  Receive Date: 20120323
  Receipt Date: 20110526
  Transmission Date: 20120825
  Serious: Yes (Hospitalization)
  Sender: FDA-Public Use
  Company Number: 163-21880-11060149

PATIENT
  Age: 90 Year
  Sex: Male
  Weight: 65.7716 kg

DRUGS (4)
  1. DIOVAN [Concomitant]
  2. FUROSEMIDE (FUROSMIDE) [Concomitant]
  3. REVLIMID [Suspect]
     Indication: MYELODYSPLASTIC SYNDROME
     Dosage: 5 MG, 1 IN 1 D, PO
     Route: 048
     Dates: start: 20110301, end: 20110401
  4. EXJADE [Concomitant]

REACTIONS (5)
  - DYSPNOEA [None]
  - VOMITING [None]
  - DIZZINESS [None]
  - FULL BLOOD COUNT DECREASED [None]
  - DIARRHOEA [None]
